FAERS Safety Report 5076589-9 (Version None)
Quarter: 2006Q3

REPORT INFORMATION
  Report Type: 
  Country: None (occurrence: None)
  Receive Date: 20060807
  Receipt Date: 20060724
  Transmission Date: 20061208
  Serious: Yes (Death, Hospitalization)
  Sender: FDA-Public Use
  Company Number: 2006080916

PATIENT
  Age: 70 Year
  Sex: Male
  Weight: 90 kg

DRUGS (7)
  1. NEURONTIN [Suspect]
     Indication: NEURALGIA
     Dosage: 300 MG (300 MG, 1 IN 1 D), ORAL
     Route: 048
     Dates: start: 20060512
  2. FLOXACILLIN SODIUM [Concomitant]
  3. CIPROFLOXACIN [Concomitant]
  4. SEVELAMER          (SEVELAMER) [Concomitant]
  5. ASPIRIN [Concomitant]
  6. AMIODARONE                  (AMIODARONE) [Concomitant]
  7. PRAVASTATIN [Concomitant]

REACTIONS (5)
  - CONFUSIONAL STATE [None]
  - DRUG WITHDRAWAL SYNDROME [None]
  - INFECTION [None]
  - SEDATION [None]
  - SOMNOLENCE [None]
